FAERS Safety Report 10373791 (Version 1)
Quarter: 2014Q1

REPORT INFORMATION
  Report Type: Spontaneous
  Country: US (occurrence: None)
  Receive Date: 20140306
  Receipt Date: 20140306
  Transmission Date: 20141002
  Serious: Yes (Other)
  Sender: FDA-Public Use
  Company Number: 163-21880-13074623

PATIENT
  Age: 67 Year
  Sex: Female
  Weight: 104 kg

DRUGS (9)
  1. REVLIMID (LENALIDOMIDE) (15 MILLIGRAM, CAPSULES) [Suspect]
     Indication: PLASMA CELL MYELOMA
     Dosage: 25 MG, 1 IN 1 D, PO?15 MG,1 IN 1 D, PO?10 MG, 1 IN 1 D, PO
     Route: 048
     Dates: start: 201112
  2. FLUTICASONE [Concomitant]
  3. VIGAMOX (MOXIFLOXACIN HYDROCHLORIDE) [Concomitant]
  4. ENABLEX (DARIFENACIN HYDROBROMIDE) [Concomitant]
  5. VAGIFEM (ESTRADIDOL) [Concomitant]
  6. VITAMIN D (ERGOCALCIFEROL) [Concomitant]
  7. PREDISOLONE (PREDNISOLONE) [Concomitant]
  8. POTASSIUM [Concomitant]
  9. BROMDAY (BROMFENAC SODIUM) [Concomitant]

REACTIONS (1)
  - Cataract [None]
